FAERS Safety Report 9308476 (Version 2)
Quarter: 2013Q3

REPORT INFORMATION
  Report Type: Report from Study
  Country: FR (occurrence: FR)
  Receive Date: 20130524
  Receipt Date: 20130717
  Transmission Date: 20140515
  Serious: Yes (Life-Threatening)
  Sender: FDA-Public Use
  Company Number: FR-ROCHE-CID000000002429075

PATIENT
  Age: 68 Year
  Sex: Male
  Weight: 68.1 kg

DRUGS (4)
  1. RITUXIMAB [Suspect]
     Indication: MANTLE CELL LYMPHOMA
     Dosage: ON DAY 1 OF THE CYCLE
     Route: 042
     Dates: start: 20130506, end: 20130513
  2. BENDAMUSTINE [Suspect]
     Indication: MANTLE CELL LYMPHOMA
     Dosage: ON DAY 1 AND DAY 2 OF THE CYCLE
     Route: 042
     Dates: start: 20130506, end: 20130513
  3. BORTEZOMIB [Suspect]
     Indication: MANTLE CELL LYMPHOMA
     Dosage: ON DAY 1, DAY DAY 4, DAY 8 AND DAY11 OF THE CYCLE.
     Route: 058
     Dates: start: 20130506, end: 20130513
  4. DEXAMETHASONE [Suspect]
     Indication: MANTLE CELL LYMPHOMA
     Dosage: ON DAY 2 OF THE CYCLE
     Route: 042
     Dates: start: 20130506, end: 20130513

REACTIONS (3)
  - Pneumonia [Not Recovered/Not Resolved]
  - Cystitis noninfective [Not Recovered/Not Resolved]
  - Bone marrow failure [Recovered/Resolved]
